FAERS Safety Report 11133228 (Version 2)
Quarter: 2015Q2

REPORT INFORMATION
  Report Type: Spontaneous
  Country: US (occurrence: US)
  Receive Date: 20150522
  Receipt Date: 20150615
  Transmission Date: 20150821
  Serious: Yes (Death)
  Sender: FDA-Public Use
  Company Number: US-ACTELION-A-US2015-118234

PATIENT
  Age: 53 Year
  Sex: Male

DRUGS (3)
  1. REVATIO [Concomitant]
     Active Substance: SILDENAFIL CITRATE
  2. ESBRIET [Concomitant]
     Active Substance: PIRFENIDONE
  3. OPSUMIT [Suspect]
     Active Substance: MACITENTAN
     Indication: PULMONARY ARTERIAL HYPERTENSION
     Dosage: 10 MG, QD
     Route: 048
     Dates: start: 20150317, end: 20150427

REACTIONS (3)
  - Interstitial lung disease [Fatal]
  - Pulmonary hypertension [Fatal]
  - Hypoxia [Fatal]

NARRATIVE: CASE EVENT DATE: 20150427
